FAERS Safety Report 8929830 (Version 1)
Quarter: 2012Q4

REPORT INFORMATION
  Report Type: 
  Country: GB (occurrence: GB)
  Receive Date: 20121128
  Receipt Date: 20121128
  Transmission Date: 20130627
  Serious: Yes (Hospitalization)
  Sender: FDA-Public Use
  Company Number: GB-WATSON-2012-20361

PATIENT
  Age: 77 Year
  Sex: Female

DRUGS (4)
  1. CITALOPRAM HYDROBROMIDE (UNKNOWN) [Suspect]
     Indication: DEPRESSION
     Dosage: 20 mg, daily
     Route: 048
     Dates: start: 201208, end: 20120928
  2. FENOFIBRATE [Concomitant]
     Indication: PRODUCT USED FOR UNKNOWN INDICATION
     Route: 065
  3. PARACETAMOL [Concomitant]
     Indication: PRODUCT USED FOR UNKNOWN INDICATION
     Route: 065
  4. ASPIRIN [Concomitant]
     Indication: PRODUCT USED FOR UNKNOWN INDICATION
     Route: 065

REACTIONS (3)
  - Convulsion [Recovered/Resolved with Sequelae]
  - Headache [Unknown]
  - Balance disorder [Unknown]
